FAERS Safety Report 9776706 (Version 1)
Quarter: 2013Q4

REPORT INFORMATION
  Report Type: Spontaneous
  Country: US (occurrence: US)
  Receive Date: 20131220
  Receipt Date: 20131220
  Transmission Date: 20140711
  Serious: Yes (Hospitalization)
  Sender: FDA-Public Use
  Company Number: US-ABBVIE-13P-163-1179828-00

PATIENT
  Sex: 0
  Weight: 49.94 kg

DRUGS (8)
  1. VICODIN [Suspect]
     Indication: FIBROMYALGIA
     Dosage: 5/500 MG
     Dates: start: 2001, end: 201108
  2. VICODIN [Suspect]
     Dosage: 5/500 MG
  3. NORCO [Suspect]
     Indication: FIBROMYALGIA
     Dosage: 10/325 MG
  4. GABAPENTIN [Suspect]
     Indication: FIBROMYALGIA
     Dates: start: 2005, end: 201211
  5. MORPHINE [Suspect]
     Indication: PAIN
     Dosage: EXTENDED RELEASE
  6. MORPHINE [Suspect]
     Indication: PAIN
     Dosage: IMMEDIATE RELEASE
  7. KEFLEX [Suspect]
     Indication: PRODUCT USED FOR UNKNOWN INDICATION
  8. XANAX [Concomitant]
     Indication: ANXIETY

REACTIONS (4)
  - Hip fracture [Unknown]
  - Upper limb fracture [Unknown]
  - Drug ineffective [Unknown]
  - Drug hypersensitivity [Unknown]
